FAERS Safety Report 11068600 (Version 1)
Quarter: 2015Q2

REPORT INFORMATION
  Report Type: Spontaneous
  Country: US (occurrence: US)
  Receive Date: 20150427
  Receipt Date: 20150427
  Transmission Date: 20150821
  Serious: No
  Sender: FDA-Public Use
  Company Number: US-PFIZER INC-2015142763

PATIENT
  Age: 69 Year
  Sex: Female
  Weight: 86 kg

DRUGS (9)
  1. ATENOLOL AND CHLORTHALIDONE [Concomitant]
     Active Substance: ATENOLOL\CHLORTHALIDONE
     Indication: HYPERTENSION
     Dosage: UNK, 1X/DAY (ATENOLOL50 MG, CHLORTALIDONE 25MG)
  2. LEVOTHYROXINE [Concomitant]
     Active Substance: LEVOTHYROXINE
     Indication: HYPOTHYROIDISM
     Dosage: 0.075 MG, 1X/DAY
  3. PRAMIPEXOLE [Concomitant]
     Active Substance: PRAMIPEXOLE
     Indication: RESTLESS LEGS SYNDROME
     Dosage: 1 MG, 1X/DAY
  4. TRAMADOL [Concomitant]
     Active Substance: TRAMADOL
     Indication: PAIN
     Dosage: 50MG UP TO 3 TIMES DAILY
  5. CELEBREX [Suspect]
     Active Substance: CELECOXIB
     Indication: BACK PAIN
     Dosage: 200 MG, 1X/DAY
  6. DULOXETINE [Concomitant]
     Active Substance: DULOXETINE
     Indication: PAIN
     Dosage: 60 MG, 1X/DAY
  7. INVOKANA [Concomitant]
     Active Substance: CANAGLIFLOZIN
     Indication: BLOOD GLUCOSE ABNORMAL
     Dosage: 100 MG, 1X/DAY
  8. CELECOXIB. [Suspect]
     Active Substance: CELECOXIB
     Indication: BACK PAIN
     Dosage: 200 MG, 1X/DAY
     Dates: start: 2014, end: 201501
  9. PANTOPRAZOLE [Concomitant]
     Active Substance: PANTOPRAZOLE SODIUM
     Indication: ABDOMINAL DISCOMFORT
     Dosage: 40 MG, 1X/DAY

REACTIONS (2)
  - Movement disorder [Not Recovered/Not Resolved]
  - Fungal infection [Recovering/Resolving]

NARRATIVE: CASE EVENT DATE: 201501
